FAERS Safety Report 16608480 (Version 1)
Quarter: 2019Q3

REPORT INFORMATION
  Report Type: Spontaneous
  Country: PL (occurrence: PL)
  Receive Date: 20190722
  Receipt Date: 20190722
  Transmission Date: 20191004
  Serious: Yes (Other)
  Sender: FDA-Public Use
  Company Number: PL-MYLANLABS-2019M1062826

PATIENT
  Age: 58 Year
  Sex: Female

DRUGS (13)
  1. DASATINIB. [Concomitant]
     Active Substance: DASATINIB
  2. CASPOFUNGIN MYLAN [Suspect]
     Active Substance: CASPOFUNGIN
     Dosage: 50 MILLIGRAM, QD
     Route: 042
  3. VINCRISTINE [Concomitant]
     Active Substance: VINCRISTINE
  4. MYCOPHENOLIC ACID. [Concomitant]
     Active Substance: MYCOPHENOLIC ACID
  5. DEXAMETHASONE. [Concomitant]
     Active Substance: DEXAMETHASONE
  6. IMATINIB. [Concomitant]
     Active Substance: IMATINIB MESYLATE
  7. CYCLOPHOSPHAMIDE. [Concomitant]
     Active Substance: CYCLOPHOSPHAMIDE
     Dosage: UNK
  8. DOXORUBICIN [Concomitant]
     Active Substance: DOXORUBICIN
  9. BUSULFAN. [Concomitant]
     Active Substance: BUSULFAN
     Dosage: UNK
  10. CICLOSPORIN [Concomitant]
     Active Substance: CYCLOSPORINE
  11. CASPOFUNGIN MYLAN [Suspect]
     Active Substance: CASPOFUNGIN
     Indication: CANDIDA INFECTION
     Dosage: 70 MILLIGRAM, QD (70 MG ON DAY 1)
     Route: 042
  12. AMPHOTERICIN B. [Concomitant]
     Active Substance: AMPHOTERICIN B
     Dosage: 3 MILLIGRAM/KILOGRAM, Q2W
  13. FLUDARABINE [Concomitant]
     Active Substance: FLUDARABINE PHOSPHATE

REACTIONS (2)
  - Therapeutic product effect incomplete [Unknown]
  - Endocarditis [Unknown]
